FAERS Safety Report 9359571 (Version 1)
Quarter: 2013Q2

REPORT INFORMATION
  Report Type: Spontaneous
  Country: US (occurrence: US)
  Receive Date: 20130620
  Receipt Date: 20130620
  Transmission Date: 20140414
  Serious: No
  Sender: FDA-Public Use
  Company Number: US-US-EMD SERONO, INC.-231806J09USA

PATIENT
  Age: 33 Year
  Sex: Female

DRUGS (4)
  1. REBIF [Suspect]
     Indication: MULTIPLE SCLEROSIS
     Route: 058
     Dates: start: 20091002, end: 2010
  2. REBIF [Suspect]
     Route: 058
     Dates: start: 2010, end: 2010
  3. PRILOSEC [Concomitant]
     Route: 065
  4. ALEVE [Concomitant]
     Route: 065
     Dates: start: 2009

REACTIONS (10)
  - Allergy to metals [Unknown]
  - Globulins increased [Unknown]
  - Blood albumin increased [Unknown]
  - Adverse drug reaction [Unknown]
  - Dyspnoea [Unknown]
  - Vomiting [Unknown]
  - Nausea [Unknown]
  - Tremor [Unknown]
  - Depression [Unknown]
  - Asthenia [Unknown]
